FAERS Safety Report 4277084-7 (Version None)
Quarter: 2004Q1

REPORT INFORMATION
  Report Type: 
  Country: None (occurrence: None)
  Receive Date: 20040120
  Receipt Date: 20040112
  Transmission Date: 20041129
  Serious: Yes (Life-Threatening)
  Sender: FDA-Public Use
  Company Number: HQWYE265613JAN04

PATIENT
  Age: 56 Year
  Sex: Male

DRUGS (4)
  1. TAZOCIN (PIPERACILLIN/TAZOBACTAM, INJECTION) [Suspect]
     Indication: PNEUMONIA
     Dosage: 4.5 GRAMS DAILY
     Route: 042
     Dates: start: 20040109, end: 20040109
  2. TAZOCIN (PIPERACILLIN/TAZOBACTAM, INJECTION) [Suspect]
     Indication: PNEUMONITIS
     Dosage: 4.5 GRAMS DAILY
     Route: 042
     Dates: start: 20040109, end: 20040109
  3. AMINOPHYLLIN [Concomitant]
  4. GLUTATHIONE (GLUTATHIONE) [Concomitant]

REACTIONS (3)
  - HAEMOLYSIS [None]
  - JAUNDICE [None]
  - LIVER DISORDER [None]
